FAERS Safety Report 9030143 (Version 3)
Quarter: 2013Q2

REPORT INFORMATION
  Report Type: Spontaneous
  Country: US (occurrence: US)
  Receive Date: 20130125
  Receipt Date: 20130531
  Transmission Date: 20140414
  Serious: No
  Sender: FDA-Public Use
  Company Number: US-PFIZER INC-2013028309

PATIENT
  Age: 39 Year
  Sex: Female
  Weight: 54.42 kg

DRUGS (4)
  1. EFFEXOR XR [Suspect]
     Indication: ANXIETY
     Dosage: 37.5 MG, 1X/DAY
     Route: 048
     Dates: start: 201202, end: 201301
  2. EFFEXOR XR [Suspect]
     Dosage: 37.5 MG, 1X/DAY
     Route: 048
  3. ATIVAN [Concomitant]
     Indication: ANXIETY
     Dosage: 0.25 MG, EVERY 4 HRS PRN
     Dates: start: 2011
  4. ATIVAN [Concomitant]
     Dosage: 2 MG (1MG IN THE MORNING, 0.5MG IN THE AFTERNOON AND 0.5MG AT NIGHT)

REACTIONS (5)
  - Product quality issue [Unknown]
  - Feeling abnormal [Recovered/Resolved]
  - Drug effect decreased [Recovered/Resolved]
  - Drug ineffective [Recovered/Resolved]
  - Withdrawal syndrome [Recovered/Resolved]
